FAERS Safety Report 8318389-X (Version None)
Quarter: 2012Q2

REPORT INFORMATION
  Report Type: 
  Country: None (occurrence: None)
  Receive Date: 20120427
  Receipt Date: 20120418
  Transmission Date: 20120825
  Serious: No
  Sender: FDA-Public Use
  Company Number: AU-ABBOTT-12P-008-0926753-03

PATIENT
  Sex: Female
  Weight: 43 kg

DRUGS (7)
  1. COLECALCIFEROL [Concomitant]
     Indication: OSTEOPOROSIS
     Dates: start: 20100303
  2. MERCAPTOPURINE [Concomitant]
     Indication: CROHN'S DISEASE
  3. HUMIRA [Suspect]
     Indication: CROHN'S DISEASE
     Dosage: 160 MG BASELINE/80 MG WEEK 2
     Dates: start: 20090605, end: 20100318
  4. LOPERAMIDE HCL [Concomitant]
     Indication: CROHN'S DISEASE
     Dates: start: 20090923
  5. CALCIUM CARBONATE [Concomitant]
     Indication: OSTEOPOROSIS
     Dates: start: 20100303
  6. CALCIUM CARBONATE [Concomitant]
     Indication: OSTEOPOROSIS PROPHYLAXIS
  7. COLECALCIFEROL [Concomitant]
     Indication: OSTEOPOROSIS PROPHYLAXIS

REACTIONS (1)
  - SQUAMOUS CELL CARCINOMA OF SKIN [None]
